FAERS Safety Report 5030731-4 (Version None)
Quarter: 2006Q2

REPORT INFORMATION
  Report Type: 
  Country: None (occurrence: None)
  Receive Date: 20060615
  Receipt Date: 20060605
  Transmission Date: 20061013
  Serious: Yes (Other)
  Sender: FDA-Public Use
  Company Number: 2006071970

PATIENT
  Age: 56 Year
  Sex: Male

DRUGS (2)
  1. SUTENT [Suspect]
     Indication: GASTROINTESTINAL STROMAL TUMOUR
     Dosage: 50 MG (50 MG, DAILY INTERVAL:  EVERY DAY), ORAL
     Route: 048
     Dates: start: 20060214
  2. GLEEVEC [Concomitant]

REACTIONS (9)
  - ASCITES [None]
  - BLOOD TEST ABNORMAL [None]
  - DYSGEUSIA [None]
  - MOUTH HAEMORRHAGE [None]
  - SKIN ATROPHY [None]
  - SKIN HAEMORRHAGE [None]
  - SUNBURN [None]
  - TONGUE DISCOLOURATION [None]
  - WEIGHT DECREASED [None]
